FAERS Safety Report 11857800 (Version 1)
Quarter: 2015Q4

REPORT INFORMATION
  Report Type: Spontaneous
  Country: CH (occurrence: CH)
  Receive Date: 20151222
  Receipt Date: 20151222
  Transmission Date: 20160305
  Serious: Yes (Other)
  Sender: FDA-Public Use
  Company Number: CH-ROCHE-1680578

PATIENT
  Sex: Female

DRUGS (1)
  1. LUCENTIS [Suspect]
     Active Substance: RANIBIZUMAB
     Indication: RETINOPATHY OF PREMATURITY
     Dosage: 1 INJECTION (0.03 ML),
     Route: 050

REACTIONS (4)
  - Product use issue [Unknown]
  - Nasopharyngitis [Recovered/Resolved]
  - Klebsiella test positive [Recovered/Resolved]
  - Intraocular pressure increased [Recovered/Resolved]
